FAERS Safety Report 16534713 (Version 3)
Quarter: 2019Q3

REPORT INFORMATION
  Report Type: Spontaneous
  Country: DE (occurrence: DE)
  Receive Date: 20190705
  Receipt Date: 20190831
  Transmission Date: 20191004
  Serious: Yes (Hospitalization)
  Sender: FDA-Public Use
  Company Number: PHHY2019DE151362

PATIENT
  Age: 79 Year
  Sex: Female
  Weight: 85 kg

DRUGS (2)
  1. PACLITAXEL. [Suspect]
     Active Substance: PACLITAXEL
     Indication: BREAST CANCER
     Dosage: 127 MG, CYCLIC
     Route: 065
     Dates: start: 20190522, end: 20190605
  2. BEVACIZUMAB. [Suspect]
     Active Substance: BEVACIZUMAB
     Indication: BREAST CANCER
     Dosage: 1275 MG, CYCLIC
     Route: 065
     Dates: start: 20190522, end: 20190522

REACTIONS (1)
  - Haematochezia [Recovered/Resolved]

NARRATIVE: CASE EVENT DATE: 20190616
